FAERS Safety Report 9039803 (Version 6)
Quarter: 2013Q3

REPORT INFORMATION
  Report Type: Spontaneous
  Country: US (occurrence: US)
  Receive Date: 20130130
  Receipt Date: 20130819
  Transmission Date: 20140515
  Serious: No
  Sender: FDA-Public Use
  Company Number: US-BIOGENIDEC-2013BI006777

PATIENT
  Age: 52 Year
  Sex: Male

DRUGS (1)
  1. TYSABRI [Suspect]
     Indication: MULTIPLE SCLEROSIS
     Route: 042
     Dates: start: 20121227

REACTIONS (10)
  - Infusion site hypersensitivity [Recovered/Resolved]
  - Erythema [Recovered/Resolved]
  - Back pain [Recovered/Resolved]
  - Musculoskeletal pain [Recovered/Resolved]
  - Pruritus [Recovered/Resolved]
  - Rash pruritic [Recovered/Resolved]
  - Arthralgia [Recovered/Resolved]
  - Rash [Recovered/Resolved]
  - Multiple sclerosis relapse [Recovered/Resolved]
  - Drug ineffective [Not Recovered/Not Resolved]
